FAERS Safety Report 17117985 (Version 3)
Quarter: 2021Q1

REPORT INFORMATION
  Report Type: Spontaneous
  Country: US (occurrence: US)
  Receive Date: 20191205
  Receipt Date: 20210302
  Transmission Date: 20210419
  Serious: Yes (Other)
  Sender: FDA-Public Use
  Company Number: US-SA-2019SA335411

PATIENT
  Age: 47 Year
  Sex: Female

DRUGS (6)
  1. DUPIXENT [Suspect]
     Active Substance: DUPILUMAB
     Indication: DERMATITIS
     Dosage: UNK, QOW
     Route: 065
     Dates: start: 2017
  2. DUPIXENT [Suspect]
     Active Substance: DUPILUMAB
     Indication: ECZEMA
     Dosage: UNK, QM
     Route: 065
  3. DUPIXENT [Suspect]
     Active Substance: DUPILUMAB
     Indication: DERMATITIS ATOPIC
     Dosage: UNK UNK, 1X
     Route: 065
     Dates: start: 201710, end: 201710
  4. LEVOTHYROXINE. [Concomitant]
     Active Substance: LEVOTHYROXINE
     Dosage: UNK
     Route: 065
     Dates: start: 2011
  5. ATENOLOL. [Concomitant]
     Active Substance: ATENOLOL
     Indication: MIGRAINE PROPHYLAXIS
     Dosage: UNK
     Route: 065
  6. IMITREX [Concomitant]
     Active Substance: SUMATRIPTAN SUCCINATE
     Indication: MIGRAINE
     Dosage: UNK
     Route: 065
     Dates: start: 2004

REACTIONS (19)
  - Dehydration [Unknown]
  - Condition aggravated [Unknown]
  - Fatigue [Unknown]
  - Product use issue [Unknown]
  - Vision blurred [Unknown]
  - Optic nerve disorder [Unknown]
  - Illness [Unknown]
  - Astigmatism [Unknown]
  - Visual impairment [Unknown]
  - Injection site bruising [Recovering/Resolving]
  - Cataract [Unknown]
  - Glaucoma [Unknown]
  - Muscle spasms [Unknown]
  - Impaired healing [Unknown]
  - Condition aggravated [Unknown]
  - Influenza like illness [Unknown]
  - Condition aggravated [Unknown]
  - Eye discharge [Unknown]
  - Visual field defect [Unknown]

NARRATIVE: CASE EVENT DATE: 2018
